FAERS Safety Report 11766665 (Version 1)
Quarter: 2015Q4

REPORT INFORMATION
  Report Type: Spontaneous
  Country: US (occurrence: None)
  Receive Date: 20151120
  Receipt Date: 20151120
  Transmission Date: 20160304
  Serious: Yes (Other)
  Sender: FDA-Public Use
  Company Number: None

PATIENT
  Age: 55 Year
  Sex: Male

DRUGS (1)
  1. H.P. ACTHAR [Suspect]
     Active Substance: CORTICOTROPIN
     Indication: POLYMYOSITIS
     Route: 058
     Dates: start: 20151013

REACTIONS (7)
  - Back pain [None]
  - Depression [None]
  - Contusion [None]
  - Hot flush [None]
  - Chest discomfort [None]
  - Night sweats [None]
  - Cough [None]

NARRATIVE: CASE EVENT DATE: 20151111
